FAERS Safety Report 7367309-3 (Version None)
Quarter: 2011Q1

REPORT INFORMATION
  Report Type: 
  Country: None (occurrence: None)
  Receive Date: 20110322
  Receipt Date: 20110315
  Transmission Date: 20110831
  Serious: Yes (Hospitalization, Other)
  Sender: FDA-Public Use
  Company Number: US-JNJFOC-20091102327

PATIENT
  Sex: Female

DRUGS (7)
  1. METRONIDAZOLE [Concomitant]
     Indication: INFECTION
     Route: 065
  2. IBUPROFEN [Suspect]
     Indication: ILL-DEFINED DISORDER
     Route: 065
  3. LEVAQUIN [Suspect]
     Indication: INFECTION
     Route: 048
     Dates: start: 20091013, end: 20091019
  4. FLAGYL [Concomitant]
     Indication: INFECTION
     Route: 048
  5. COGENTIN [Concomitant]
     Indication: MOVEMENT DISORDER
     Route: 048
  6. AMBIEN [Interacting]
     Indication: INSOMNIA
     Route: 048
  7. ADVIL PM [Suspect]
     Indication: INSOMNIA
     Route: 065

REACTIONS (5)
  - PARANOIA [None]
  - PSYCHOTIC DISORDER [None]
  - CONDITION AGGRAVATED [None]
  - DRUG INTERACTION [None]
  - INSOMNIA [None]
